FAERS Safety Report 9028906 (Version 1)
Quarter: 2013Q1

REPORT INFORMATION
  Report Type: Spontaneous
  Country: US (occurrence: US)
  Receive Date: 20130124
  Receipt Date: 20130124
  Transmission Date: 20140127
  Serious: No
  Sender: FDA-Public Use
  Company Number: US-PFIZER INC-2013026658

PATIENT
  Age: 67 Year
  Sex: Female

DRUGS (7)
  1. INLYTA [Suspect]
     Indication: RENAL CANCER
     Dosage: 5 MG, UNK
     Dates: start: 20120107
  2. AMLODIPINE BESILATE/BENAZEPRIL HYDROCHLORIDE [Concomitant]
     Dosage: UNK
  3. CITALOPRAM HYDROBROMIDE [Concomitant]
     Dosage: UNK
  4. DEMADEX [Concomitant]
     Dosage: UNK
  5. LEVOTHYROXINE SODIUM [Concomitant]
     Dosage: UNK
  6. LIPITOR [Concomitant]
     Dosage: UNK
  7. ONDANSETRON HYDROCHLORIDE [Concomitant]
     Dosage: UNK

REACTIONS (2)
  - Nausea [Unknown]
  - Migraine with aura [Unknown]
